FAERS Safety Report 8450032-1 (Version None)
Quarter: 2012Q2

REPORT INFORMATION
  Report Type: 
  Country: None (occurrence: None)
  Receive Date: 20120620
  Receipt Date: 20120619
  Transmission Date: 20120825
  Serious: Yes (Hospitalization, Other)
  Sender: FDA-Public Use
  Company Number: JP-JNJFOC-20120414187

PATIENT
  Age: 47 Year
  Sex: Male

DRUGS (3)
  1. UNKNOWN MEDICATION [Concomitant]
     Route: 065
  2. TRAMADOL HCL [Suspect]
     Indication: PRODUCT USED FOR UNKNOWN INDICATION
     Dosage: ONE PER ONE DAY
     Route: 048
     Dates: start: 20111228, end: 20111228
  3. TRAMADOL HCL [Suspect]
     Dosage: ONE PER ONE DAY
     Route: 048
     Dates: start: 20120201

REACTIONS (1)
  - PANCREATITIS ACUTE [None]
